FAERS Safety Report 9630566 (Version 14)
Quarter: 2016Q4

REPORT INFORMATION
  Report Type: Report from Study
  Country: CA (occurrence: CA)
  Receive Date: 20131018
  Receipt Date: 20161208
  Transmission Date: 20170207
  Serious: No
  Sender: FDA-Public Use
  Company Number: PHHY2013CA075464

PATIENT
  Age: 62 Year
  Sex: Male

DRUGS (4)
  1. TASIGNA [Suspect]
     Active Substance: NILOTINIB
     Indication: CHRONIC MYELOID LEUKAEMIA
     Dosage: 400 MG, BID
     Route: 048
     Dates: start: 201204
  2. TASIGNA [Interacting]
     Active Substance: NILOTINIB
     Dosage: 300 MG, BID
     Route: 065
  3. INFLUENZA VIRUS VACC SEASONAL INN [Suspect]
     Active Substance: INFLUENZA VIRUS VACCINE
     Indication: IMMUNISATION
     Dosage: 1 DF
     Route: 065
  4. TYLENOL [Interacting]
     Active Substance: ACETAMINOPHEN
     Indication: INFLUENZA
     Route: 065
     Dates: start: 201311

REACTIONS (18)
  - Scab [Unknown]
  - Influenza [Unknown]
  - Hepatic enzyme abnormal [Recovered/Resolved]
  - Pruritus [Recovering/Resolving]
  - Rash [Not Recovered/Not Resolved]
  - Skin haemorrhage [Recovering/Resolving]
  - Haemorrhage [Unknown]
  - Dry skin [Recovering/Resolving]
  - Dandruff [Recovering/Resolving]
  - Depressed mood [Recovering/Resolving]
  - Visceral pain [Not Recovered/Not Resolved]
  - Pain of skin [Recovering/Resolving]
  - Drug interaction [Unknown]
  - Burning sensation [Not Recovered/Not Resolved]
  - Rash pruritic [Not Recovered/Not Resolved]
  - Psoriasis [Recovering/Resolving]
  - Drug ineffective [Unknown]
  - Abdominal pain [Unknown]

NARRATIVE: CASE EVENT DATE: 201311
